FAERS Safety Report 10332144 (Version 2)
Quarter: 2014Q3

REPORT INFORMATION
  Report Type: Report from Study
  Country: AR (occurrence: AR)
  Receive Date: 20140722
  Receipt Date: 20140908
  Transmission Date: 20150326
  Serious: Yes (Hospitalization, Other)
  Sender: FDA-Public Use
  Company Number: AR-BRISTOL-MYERS SQUIBB COMPANY-21204417

PATIENT
  Age: 77 Year
  Sex: Female

DRUGS (1)
  1. NULOJIX [Suspect]
     Active Substance: BELATACEPT
     Dates: start: 20131205

REACTIONS (2)
  - Asthenia [Recovering/Resolving]
  - Pneumonia [Not Recovered/Not Resolved]

NARRATIVE: CASE EVENT DATE: 20140807
